FAERS Safety Report 24377782 (Version 1)
Quarter: 2024Q3

REPORT INFORMATION
  Report Type: Spontaneous
  Country: FR (occurrence: FR)
  Receive Date: 20240930
  Receipt Date: 20240930
  Transmission Date: 20241016
  Serious: Yes (Other)
  Sender: SANOFI AVENTIS
  Company Number: None

PATIENT
  Age: 61 Year
  Sex: Male
  Weight: 92 kg

DRUGS (3)
  1. ENOXAPARIN SODIUM [Suspect]
     Active Substance: ENOXAPARIN SODIUM
     Indication: Thrombosis prophylaxis
     Dosage: QD (8500.000 X 10*6.IU, QD)
     Route: 058
     Dates: start: 20240502, end: 20240705
  2. HEPARIN SODIUM [Suspect]
     Active Substance: HEPARIN SODIUM
     Indication: Thrombosis prophylaxis
     Dosage: (12000.000 X 10*6.IU, QD)
     Route: 042
     Dates: start: 20240628, end: 20240702
  3. WARFARIN SODIUM [Concomitant]
     Active Substance: WARFARIN SODIUM
     Dosage: 3 MG, QD
     Route: 048
     Dates: start: 20240702, end: 20240705

REACTIONS (6)
  - Arterial thrombosis [Recovered/Resolved]
  - Venous thrombosis [Recovered/Resolved]
  - Pulmonary embolism [Recovering/Resolving]
  - Budd-Chiari syndrome [Unknown]
  - Heparin-induced thrombocytopenia [Recovered/Resolved]
  - Drug ineffective [Unknown]

NARRATIVE: CASE EVENT DATE: 20240628
